FAERS Safety Report 26213799 (Version 1)
Quarter: 2025Q4

REPORT INFORMATION
  Report Type: Spontaneous
  Country: US (occurrence: US)
  Receive Date: 20251230
  Receipt Date: 20251230
  Transmission Date: 20260118
  Serious: No
  Sender: BRACCO
  Company Number: US-BRACCO-2025US08028

PATIENT
  Age: 86 Year
  Sex: Male

DRUGS (15)
  1. LUMASON [Suspect]
     Active Substance: SULFUR HEXAFLUORIDE
     Indication: Echocardiogram
     Dosage: 2.5 ML, SINGLE
     Dates: start: 20251113, end: 20251113
  2. LUMASON [Suspect]
     Active Substance: SULFUR HEXAFLUORIDE
  3. LUMASON [Suspect]
     Active Substance: SULFUR HEXAFLUORIDE
  4. CEFTRIAXONE [Concomitant]
     Active Substance: CEFTRIAXONE
  5. FUROSEMIDE [Concomitant]
     Active Substance: FUROSEMIDE
  6. VANCOMYCIN [Concomitant]
     Active Substance: VANCOMYCIN
  7. ACETYLCYSTEINE [Concomitant]
     Active Substance: ACETYLCYSTEINE
  8. ALBUTEROL\IPRATROPIUM [Concomitant]
     Active Substance: ALBUTEROL\IPRATROPIUM
  9. TAMSULOSIN [Concomitant]
     Active Substance: TAMSULOSIN
  10. BUDESONIDE [Concomitant]
     Active Substance: BUDESONIDE
  11. HEPARIN [Concomitant]
     Active Substance: HEPARIN SODIUM
  12. ROSUVASTATIN [Concomitant]
     Active Substance: ROSUVASTATIN
  13. DEXTROSE [Concomitant]
     Active Substance: DEXTROSE MONOHYDRATE
  14. GLUCAGON [Concomitant]
     Active Substance: GLUCAGON
  15. INSULIN NOS [Concomitant]
     Active Substance: INSULIN NOS

REACTIONS (2)
  - Cough [Recovering/Resolving]
  - Dyspnoea [Recovering/Resolving]

NARRATIVE: CASE EVENT DATE: 20251113
